FAERS Safety Report 15618433 (Version 1)
Quarter: 2018Q4

REPORT INFORMATION
  Report Type: Spontaneous
  Country: FR (occurrence: FR)
  Receive Date: 20181114
  Receipt Date: 20181114
  Transmission Date: 20190205
  Serious: Yes (Hospitalization, Other)
  Sender: FDA-Public Use
  Company Number: FR-OTSUKA-2018_035976

PATIENT
  Age: 72 Year
  Sex: Female

DRUGS (4)
  1. LOXAPAC [Suspect]
     Active Substance: LOXAPINE
     Indication: MANIA
     Dosage: 75 MG, UNK
     Route: 048
     Dates: start: 20181018, end: 20181024
  2. ABILIFY [Suspect]
     Active Substance: ARIPIPRAZOLE
     Indication: MANIA
     Dosage: 10 MG, QD
     Route: 048
     Dates: start: 20181015, end: 20181025
  3. EFFEXOR [Concomitant]
     Active Substance: VENLAFAXINE HYDROCHLORIDE
     Indication: DEPRESSION
     Dosage: 150 MG, QD
     Route: 048
     Dates: start: 201803, end: 20181015
  4. SOTALOL. [Concomitant]
     Active Substance: SOTALOL
     Indication: OBSTRUCTION GASTRIC
     Dosage: 80 MG, QD
     Route: 048
     Dates: start: 2006

REACTIONS (2)
  - Pulmonary embolism [Recovering/Resolving]
  - Product use in unapproved indication [Unknown]

NARRATIVE: CASE EVENT DATE: 20181025
